FAERS Safety Report 17796394 (Version 1)
Quarter: 2020Q2

REPORT INFORMATION
  Report Type: Spontaneous
  Country: US (occurrence: US)
  Receive Date: 20200518
  Receipt Date: 20200518
  Transmission Date: 20200714
  Serious: Yes (Death, Hospitalization, Other)
  Sender: FDA-Public Use
  Company Number: US-AUROBINDO-AUR-APL-2020-022542

PATIENT
  Age: 27 Year
  Sex: Male

DRUGS (2)
  1. AMPHETAMINE SULFATE. [Suspect]
     Active Substance: AMPHETAMINE SULFATE
     Indication: PRODUCT USED FOR UNKNOWN INDICATION
     Dosage: UNK
     Route: 048
  2. AMPHETAMINE SULFATE. [Suspect]
     Active Substance: AMPHETAMINE SULFATE
     Dosage: UNK
     Route: 065

REACTIONS (10)
  - Pneumonitis chemical [Fatal]
  - Cardiac arrest [Fatal]
  - Depressed level of consciousness [Fatal]
  - Paralysis [Fatal]
  - Renal failure [Fatal]
  - Acidosis [Fatal]
  - Hypoxia [Fatal]
  - Respiratory depression [Fatal]
  - Hypotension [Fatal]
  - Ischaemic hepatitis [Fatal]
